FAERS Safety Report 9745739 (Version 1)
Quarter: 2013Q4

REPORT INFORMATION
  Report Type: Spontaneous
  Country: US (occurrence: US)
  Receive Date: 20131211
  Receipt Date: 20131211
  Transmission Date: 20140711
  Serious: Yes (Hospitalization)
  Sender: FDA-Public Use
  Company Number: US-SA-2013SA128783

PATIENT
  Sex: Female
  Weight: 68.94 kg

DRUGS (4)
  1. PLAVIX [Suspect]
     Route: 065
  2. LISINOPRIL [Concomitant]
     Route: 065
  3. ADVAIR [Concomitant]
     Route: 065
  4. ALBUTEROL [Concomitant]
     Route: 065

REACTIONS (1)
  - Atrial fibrillation [Unknown]
